FAERS Safety Report 4287345-3 (Version None)
Quarter: 2004Q1

REPORT INFORMATION
  Report Type: 
  Country: None (occurrence: None)
  Receive Date: 20040205
  Receipt Date: 20030306
  Transmission Date: 20041129
  Serious: Yes (Hospitalization)
  Sender: FDA-Public Use
  Company Number: B01200300609

PATIENT
  Age: 56 Year
  Sex: Male

DRUGS (2)
  1. (CLOPIDOGREL / ASPIRIN) - TABLET - UNIT DOSE : UNKNOWN [Suspect]
     Indication: ISCHAEMIC STROKE
     Dosage: 75 MG CLOPIDOGREL + 75 MG ASPIRIN DAILY ORAL
     Route: 048
     Dates: start: 20010410
  2. (CLOPIDOGREL / ASPIRIN) - TABLET - UNIT DOSE : UNKNOWN [Suspect]
     Indication: TRANSIENT ISCHAEMIC ATTACK
     Dosage: 75 MG CLOPIDOGREL + 75 MG ASPIRIN DAILY ORAL
     Route: 048
     Dates: start: 20010410

REACTIONS (4)
  - ANAL HAEMORRHAGE [None]
  - HAEMOGLOBIN DECREASED [None]
  - HAEMORRHOIDS [None]
  - HELICOBACTER GASTRITIS [None]
